FAERS Safety Report 7319878-7 (Version None)
Quarter: 2011Q1

REPORT INFORMATION
  Report Type: 
  Country: None (occurrence: None)
  Receive Date: 20110228
  Receipt Date: 20101108
  Transmission Date: 20110831
  Serious: Yes (Other)
  Sender: FDA-Public Use
  Company Number: A0891316A

PATIENT
  Age: 48 Year
  Sex: Female

DRUGS (2)
  1. MULTIVITAMIN [Concomitant]
  2. LAMICTAL [Suspect]
     Indication: EPILEPSY
     Dosage: 100MG TWICE PER DAY
     Route: 048
     Dates: start: 20050101

REACTIONS (6)
  - CONVULSION [None]
  - SOMNOLENCE [None]
  - STRESS [None]
  - DISORIENTATION [None]
  - IMPAIRED DRIVING ABILITY [None]
  - LOSS OF CONSCIOUSNESS [None]
